FAERS Safety Report 11386882 (Version 1)
Quarter: 2015Q3

REPORT INFORMATION
  Report Type: Spontaneous
  Country: US (occurrence: US)
  Receive Date: 20150817
  Receipt Date: 20150817
  Transmission Date: 20151125
  Serious: No
  Sender: FDA-Public Use
  Company Number: US-PFIZER INC-2015270343

PATIENT
  Age: 4 Year
  Sex: Male

DRUGS (1)
  1. QUILLIVANT XR [Suspect]
     Active Substance: METHYLPHENIDATE HYDROCHLORIDE
     Dosage: 0.5 ML, UNK

REACTIONS (4)
  - Sleep disorder [Unknown]
  - Abnormal behaviour [Unknown]
  - Drug ineffective [Unknown]
  - Product use issue [Unknown]
